FAERS Safety Report 24160015 (Version 1)
Quarter: 2024Q3

REPORT INFORMATION
  Report Type: Spontaneous
  Country: US (occurrence: US)
  Receive Date: 20240801
  Receipt Date: 20240801
  Transmission Date: 20241016
  Serious: No
  Sender: IRONSHORE PHARMA
  Company Number: US-Ironshore Pharmaceuticals Inc.-IRON20240889

PATIENT
  Age: 11 Year
  Sex: Male

DRUGS (1)
  1. JORNAY PM EXTENDED-RELEASE [Suspect]
     Active Substance: METHYLPHENIDATE HYDROCHLORIDE
     Indication: Product used for unknown indication
     Dosage: 60 MG
     Route: 048

REACTIONS (3)
  - Insomnia [Unknown]
  - Drug effect faster than expected [Unknown]
  - Inappropriate schedule of product administration [None]

NARRATIVE: CASE EVENT DATE: 20240101
